FAERS Safety Report 5795347-0 (Version None)
Quarter: 2008Q2

REPORT INFORMATION
  Report Type: 
  Country: None (occurrence: None)
  Receive Date: 20080630
  Receipt Date: 20080613
  Transmission Date: 20081010
  Serious: Yes (Death, Hospitalization)
  Sender: FDA-Public Use
  Company Number: FR-PFIZER INC-2006063564

PATIENT
  Sex: Male
  Weight: 87 kg

DRUGS (4)
  1. SU-011,248 [Suspect]
     Indication: HEPATIC NEOPLASM MALIGNANT
     Route: 048
     Dates: start: 20060412, end: 20060509
  2. PERINDOPRIL ERBUMINE [Concomitant]
     Route: 048
  3. ACETAMINOPHEN [Concomitant]
     Route: 048
     Dates: start: 20060412, end: 20060501
  4. ALLOPURINOL [Concomitant]
     Route: 048

REACTIONS (8)
  - ANAEMIA [None]
  - ASTHENIA [None]
  - EPISTAXIS [None]
  - MOUTH HAEMORRHAGE [None]
  - PETECHIAE [None]
  - RECTAL HAEMORRHAGE [None]
  - THROMBOCYTOPENIA [None]
  - VOMITING [None]
